FAERS Safety Report 26108430 (Version 1)
Quarter: 2025Q4

REPORT INFORMATION
  Report Type: Spontaneous
  Country: EU (occurrence: EU)
  Receive Date: 20251201
  Receipt Date: 20251201
  Transmission Date: 20260117
  Serious: Yes (Hospitalization)
  Sender: FRESENIUS KABI
  Company Number: None

PATIENT
  Age: 74 Year
  Sex: Male

DRUGS (3)
  1. TOCILIZUMAB [Suspect]
     Active Substance: TOCILIZUMAB
     Indication: Neoplasm malignant
     Route: 042
     Dates: start: 20250912, end: 20251009
  2. IPILIMUMAB [Concomitant]
     Active Substance: IPILIMUMAB
     Indication: Neoplasm malignant
     Route: 042
     Dates: start: 20250702
  3. NIVOLUMAB [Concomitant]
     Active Substance: NIVOLUMAB
     Indication: Neoplasm malignant
     Route: 042
     Dates: start: 20250702

REACTIONS (1)
  - Cholelithiasis [Not Recovered/Not Resolved]

NARRATIVE: CASE EVENT DATE: 20251020
